FAERS Safety Report 7414629-X (Version None)
Quarter: 2011Q2

REPORT INFORMATION
  Report Type: 
  Country: None (occurrence: None)
  Receive Date: 20110414
  Receipt Date: 20090415
  Transmission Date: 20111010
  Serious: Yes (Other)
  Sender: FDA-Public Use
  Company Number: FR-CELGENEUS-056-20785-10111322

PATIENT
  Age: 70 Year
  Sex: Female

DRUGS (2)
  1. THALIDOMIDE [Suspect]
     Dosage: 100 MILLIGRAM
     Route: 048
     Dates: end: 20080415
  2. THALIDOMIDE [Suspect]
     Indication: MULTIPLE MYELOMA
     Dosage: 150 MILLIGRAM
     Route: 048
     Dates: start: 20071215

REACTIONS (4)
  - NO THERAPEUTIC RESPONSE [None]
  - HEPATOTOXICITY [None]
  - MULTIPLE MYELOMA [None]
  - POLYNEUROPATHY [None]
